FAERS Safety Report 5329747-X (Version None)
Quarter: 2007Q2

REPORT INFORMATION
  Report Type: 
  Country: None (occurrence: None)
  Receive Date: 20070521
  Receipt Date: 20070511
  Transmission Date: 20071010
  Serious: Yes (Other)
  Sender: FDA-Public Use
  Company Number: BR-ROCHE-497729

PATIENT
  Age: 24 Year
  Sex: Female
  Weight: 68 kg

DRUGS (2)
  1. ISOTRETINOIN [Suspect]
     Indication: ACNE
     Route: 048
     Dates: start: 20061101, end: 20070201
  2. UNSPECIFIED DRUG [Concomitant]
     Indication: CONTRACEPTION
     Route: 030

REACTIONS (2)
  - NO ADVERSE EFFECT [None]
  - PREGNANCY [None]
